FAERS Safety Report 7584398-1 (Version None)
Quarter: 2011Q2

REPORT INFORMATION
  Report Type: 
  Country: None (occurrence: None)
  Receive Date: 20110630
  Receipt Date: 20110621
  Transmission Date: 20111010
  Serious: Yes (Hospitalization)
  Sender: FDA-Public Use
  Company Number: DE-UCBSA-021445

PATIENT
  Sex: Female
  Weight: 92 kg

DRUGS (13)
  1. ALLOPURINOL [Concomitant]
     Indication: HYPERURICAEMIA
     Route: 048
     Dates: start: 20090526
  2. IBUPROFEN [Concomitant]
     Dates: start: 20110505
  3. ALLOPURINOL [Concomitant]
     Dates: start: 20100615
  4. IBUPROFEN [Concomitant]
     Indication: PAIN
     Route: 048
     Dates: start: 20100526
  5. KORODIN [Concomitant]
     Indication: HYPERTENSION
     Dosage: 20 DROPS PRN
     Dates: start: 19740101
  6. OMEPRAZOLE [Concomitant]
     Indication: PROPHYLAXIS
     Route: 048
     Dates: start: 20080226
  7. CERTOLIZUMAB PEGOL [Suspect]
     Indication: RHEUMATOID ARTHRITIS
     Route: 058
     Dates: start: 20100921, end: 20101019
  8. CERTOLIZUMAB PEGOL [Suspect]
     Dosage: TO RESTART ON 23-JUN-2011
     Route: 058
     Dates: start: 20101102, end: 20110526
  9. IBUPROFEN [Concomitant]
     Indication: POLYARTHRITIS
     Route: 048
     Dates: start: 20100526
  10. NOVAMINSULFON [Concomitant]
     Indication: POLYARTHRITIS
     Dosage: 20 DROPS PRN BUT ORAL ONCE DAILY
     Route: 048
     Dates: start: 20101014
  11. ALLOPURINOL [Concomitant]
     Indication: GOUT
     Route: 048
     Dates: start: 20090526
  12. IBUPROFEN [Concomitant]
     Dates: start: 20110505
  13. ALLOPURINOL [Concomitant]
     Dates: start: 20100615

REACTIONS (5)
  - VERTEBRAL FORAMINAL STENOSIS [None]
  - LUMBAR RADICULOPATHY [None]
  - JOINT INSTABILITY [None]
  - BURSITIS [None]
  - LUMBAR SPINAL STENOSIS [None]
